FAERS Safety Report 6524882-2 (Version None)
Quarter: 2009Q4

REPORT INFORMATION
  Report Type: 
  Country: None (occurrence: None)
  Receive Date: 20091228
  Receipt Date: 20091228
  Transmission Date: 20100525
  Serious: No
  Sender: FDA-Public Use
  Company Number: None

PATIENT
  Sex: Female

DRUGS (3)
  1. COLD REMEDY RAPID MELTS [Suspect]
     Dosage: 2 OR 3 A DAY - 3 DAYS
     Dates: start: 20090201, end: 20090201
  2. ACTIFED [Concomitant]
  3. EFFEXOR [Concomitant]

REACTIONS (2)
  - AGEUSIA [None]
  - ANOSMIA [None]
